FAERS Safety Report 8307440-9 (Version None)
Quarter: 2012Q1

REPORT INFORMATION
  Report Type: 
  Country: None (occurrence: None)
  Receive Date: 20120327
  Receipt Date: 20090805
  Transmission Date: 20120608
  Serious: Yes (Death)
  Sender: FDA-Public Use
  Company Number: PHEH2009US07449

PATIENT
  Age: 64 Year
  Sex: Male

DRUGS (8)
  1. RAPAMUNE [Concomitant]
  2. SUNITINIB MALATE [Concomitant]
  3. GLEEVEC [Suspect]
     Indication: CHRONIC MYELOID LEUKAEMIA
     Dosage: 800 MG, QD, ORAL
     Route: 048
     Dates: start: 20070616
  4. GLEEVEC [Suspect]
     Indication: GASTROINTESTINAL CANCER METASTATIC
     Dosage: 800 MG, QD, ORAL
     Route: 048
     Dates: start: 20070616
  5. GLEEVEC [Suspect]
     Indication: CHRONIC MYELOID LEUKAEMIA
     Dosage: 800 MG, QD, ORAL
     Route: 048
     Dates: end: 20020101
  6. GLEEVEC [Suspect]
     Indication: GASTROINTESTINAL CANCER METASTATIC
     Dosage: 800 MG, QD, ORAL
     Route: 048
     Dates: end: 20020101
  7. SORATENIB [Concomitant]
  8. NILOTINIB (NILOTINIB) [Concomitant]

REACTIONS (2)
  - NEOPLASM MALIGNANT [None]
  - NEOPLASM PROGRESSION [None]
